FAERS Safety Report 24821259 (Version 2)
Quarter: 2025Q1

REPORT INFORMATION
  Report Type: Spontaneous
  Country: US (occurrence: US)
  Receive Date: 20250108
  Receipt Date: 20250128
  Transmission Date: 20250408
  Serious: No
  Sender: SANOFI AVENTIS
  Company Number: US-SA-2025SA003977

PATIENT
  Age: 21 Year
  Sex: Female
  Weight: 75.737 kg

DRUGS (11)
  1. DUPIXENT [Suspect]
     Active Substance: DUPILUMAB
     Indication: Dermatitis atopic
     Dosage: 300 MG, QOW
     Route: 058
     Dates: start: 202410
  2. FAMOTIDINE [Concomitant]
     Active Substance: FAMOTIDINE
     Dosage: QD
     Route: 048
  3. EPIPEN [Concomitant]
     Active Substance: EPINEPHRINE
  4. ZYRTEC [Concomitant]
     Active Substance: CETIRIZINE HYDROCHLORIDE
     Dosage: 1.000DF BID
     Route: 048
  5. LEXAPRO [Concomitant]
     Active Substance: ESCITALOPRAM OXALATE
     Dosage: QD
     Route: 048
  6. PREDNISONE [Concomitant]
     Active Substance: PREDNISONE
     Route: 048
  7. DESONIDE [Concomitant]
     Active Substance: DESONIDE
     Dosage: BID
     Route: 061
  8. PROAIR RESPICLICK [Concomitant]
     Active Substance: ALBUTEROL SULFATE
  9. TACROLIMUS [Concomitant]
     Active Substance: TACROLIMUS
     Route: 061
  10. TRIAMCINOLONE ACETONIDE [Concomitant]
     Active Substance: TRIAMCINOLONE ACETONIDE
     Route: 061
  11. CONCERTA [Concomitant]
     Active Substance: METHYLPHENIDATE HYDROCHLORIDE
     Dosage: QD
     Route: 048

REACTIONS (4)
  - Skin lesion [Unknown]
  - Hidradenitis [Unknown]
  - Post inflammatory pigmentation change [Unknown]
  - Dermatitis atopic [Recovered/Resolved]
